FAERS Safety Report 23097844 (Version 21)
Quarter: 2024Q2

REPORT INFORMATION
  Report Type: Spontaneous
  Country: GB (occurrence: GB)
  Receive Date: 20231023
  Receipt Date: 20240515
  Transmission Date: 20240715
  Serious: Yes (Hospitalization, Other)
  Sender: FDA-Public Use
  Company Number: GB-002147023-NVSC2023GB152984

PATIENT
  Age: 48 Year
  Sex: Female
  Weight: 49.8 kg

DRUGS (34)
  1. OXALIPLATIN [Suspect]
     Active Substance: OXALIPLATIN
     Indication: Colorectal cancer metastatic
     Dosage: 120 MILLIGRAM
     Route: 042
     Dates: start: 20230405
  2. OXALIPLATIN [Suspect]
     Active Substance: OXALIPLATIN
     Dosage: 120 MILLIGRAM
     Route: 042
  3. OXALIPLATIN [Suspect]
     Active Substance: OXALIPLATIN
     Dosage: 120 MILLIGRAM
     Route: 042
  4. OXALIPLATIN [Suspect]
     Active Substance: OXALIPLATIN
     Dosage: 120 MILLIGRAM
     Route: 042
  5. OXALIPLATIN [Suspect]
     Active Substance: OXALIPLATIN
     Dosage: 120 MILLIGRAM
     Route: 042
  6. OXALIPLATIN [Suspect]
     Active Substance: OXALIPLATIN
     Dosage: UNK
     Route: 042
  7. ZOPICLONE [Suspect]
     Active Substance: ZOPICLONE
     Indication: Insomnia
     Dosage: UNK
     Route: 065
     Dates: start: 20230523
  8. BEVACIZUMAB [Suspect]
     Active Substance: BEVACIZUMAB
     Indication: Colorectal cancer metastatic
     Dosage: 250 MILLIGRAM
     Route: 042
     Dates: start: 20230405
  9. OXALIPLATIN [Suspect]
     Active Substance: OXALIPLATIN
     Indication: Colorectal cancer metastatic
     Dosage: 120 MILLIGRAM
     Route: 042
     Dates: start: 20230405
  10. OXALIPLATIN [Suspect]
     Active Substance: OXALIPLATIN
     Dosage: 120 MILLIGRAM
     Route: 042
  11. OXALIPLATIN [Suspect]
     Active Substance: OXALIPLATIN
     Dosage: 120 MILLIGRAM
     Route: 042
     Dates: start: 20230405
  12. OXALIPLATIN [Suspect]
     Active Substance: OXALIPLATIN
     Dosage: 120 MILLIGRAM
     Route: 042
  13. OXALIPLATIN [Suspect]
     Active Substance: OXALIPLATIN
     Dosage: 120 MILLIGRAM
     Route: 042
  14. OXALIPLATIN [Suspect]
     Active Substance: OXALIPLATIN
     Dosage: 120 MILLIGRAM
     Route: 042
  15. OXALIPLATIN [Suspect]
     Active Substance: OXALIPLATIN
     Dosage: 120 MILLIGRAM
     Route: 042
     Dates: start: 20230405
  16. OXALIPLATIN [Suspect]
     Active Substance: OXALIPLATIN
     Dosage: 120 MILLIGRAM
     Route: 042
  17. OXALIPLATIN [Suspect]
     Active Substance: OXALIPLATIN
     Dosage: 120 MILLIGRAM
     Route: 042
  18. OXALIPLATIN [Suspect]
     Active Substance: OXALIPLATIN
     Dosage: 120 MILLIGRAM
     Route: 042
  19. LEUCOVORIN [Suspect]
     Active Substance: LEUCOVORIN\LEUCOVORIN CALCIUM
     Indication: Colorectal cancer metastatic
     Dosage: 590 MILLIGRAM
     Route: 042
     Dates: start: 20230405
  20. LEUCOVORIN [Suspect]
     Active Substance: LEUCOVORIN\LEUCOVORIN CALCIUM
     Dosage: 690 MILLIGRAM
     Route: 042
     Dates: start: 20230405
  21. LEUCOVORIN [Suspect]
     Active Substance: LEUCOVORIN\LEUCOVORIN CALCIUM
     Dosage: 590 MILLIGRAM
     Route: 042
     Dates: start: 20230405
  22. LEUCOVORIN [Suspect]
     Active Substance: LEUCOVORIN\LEUCOVORIN CALCIUM
     Dosage: 690 MILLIGRAM
     Route: 042
     Dates: start: 20230405
  23. FLUOROURACIL [Suspect]
     Active Substance: FLUOROURACIL
     Indication: Colorectal cancer metastatic
     Dosage: 600 MILLIGRAM
     Route: 042
     Dates: start: 20230405
  24. FLUOROURACIL [Suspect]
     Active Substance: FLUOROURACIL
     Dosage: UNK
     Route: 065
  25. LEUCOVORIN CALCIUM [Suspect]
     Active Substance: LEUCOVORIN CALCIUM
     Indication: Colorectal cancer metastatic
     Dosage: 590 MILLIGRAM
     Route: 042
     Dates: start: 20230405
  26. LEUCOVORIN CALCIUM [Suspect]
     Active Substance: LEUCOVORIN CALCIUM
     Dosage: 690 MILLIGRAM
     Route: 042
     Dates: start: 20230405
  27. LEUCOVORIN CALCIUM [Suspect]
     Active Substance: LEUCOVORIN CALCIUM
     Dosage: 590 MILLIGRAM
     Route: 042
     Dates: start: 20230405
  28. XARELTO [Concomitant]
     Active Substance: RIVAROXABAN
     Indication: Deep vein thrombosis
     Dosage: UNK
     Route: 065
     Dates: start: 20230608
  29. XARELTO [Concomitant]
     Active Substance: RIVAROXABAN
     Indication: Pulmonary embolism
     Dosage: UNK
     Route: 065
  30. BENZYDAMINE [Concomitant]
     Active Substance: BENZYDAMINE
     Indication: Stomatitis
     Dosage: 0.15 PERCENT
     Route: 048
     Dates: start: 20230605
  31. BENZYDAMINE [Concomitant]
     Active Substance: BENZYDAMINE
     Dosage: UNK
     Route: 065
  32. MORPHINE SULFATE [Concomitant]
     Active Substance: MORPHINE SULFATE
     Indication: Abdominal pain lower
     Dosage: UNK
     Route: 065
     Dates: start: 20230502
  33. MORPHINE SULFATE [Concomitant]
     Active Substance: MORPHINE SULFATE
     Dosage: 600 MILLIGRAM
     Route: 065
     Dates: start: 20230502
  34. ZOPICLONE [Concomitant]
     Active Substance: ZOPICLONE
     Indication: Insomnia
     Dosage: UNK
     Route: 048
     Dates: start: 20230523

REACTIONS (4)
  - Ascites [Recovering/Resolving]
  - Malignant neoplasm progression [Unknown]
  - Colorectal cancer metastatic [Unknown]
  - Condition aggravated [Unknown]

NARRATIVE: CASE EVENT DATE: 20230630
